FAERS Safety Report 9204748 (Version 2)
Quarter: 2014Q1

REPORT INFORMATION
  Report Type: Spontaneous
  Country: US (occurrence: US)
  Receive Date: 20130402
  Receipt Date: 20140127
  Transmission Date: 20141002
  Serious: Yes (Hospitalization, Other)
  Sender: FDA-Public Use
  Company Number: US-BAYER-2013-039224

PATIENT
  Age: 18 Year
  Sex: Female

DRUGS (9)
  1. YAZ [Suspect]
     Indication: CONTRACEPTION
     Dosage: UNK
     Dates: start: 200506, end: 200712
  2. YASMIN [Suspect]
     Indication: CONTRACEPTION
     Dosage: UNK
     Dates: start: 200506
  3. YASMIN [Suspect]
     Indication: DYSFUNCTIONAL UTERINE BLEEDING
  4. YASMIN [Suspect]
     Indication: DYSMENORRHOEA
  5. BENTYL [Concomitant]
     Dosage: UNK
     Route: 048
     Dates: start: 20080918
  6. DONNATAL [Concomitant]
     Dosage: UNK
     Route: 048
     Dates: start: 20080918
  7. ROBINUL [Concomitant]
     Dosage: UNK
     Route: 048
     Dates: start: 20080918
  8. PAMINE [Concomitant]
     Dosage: UNK
     Route: 048
     Dates: start: 20080918
  9. MEPERGAN [Concomitant]
     Dosage: UNK
     Route: 048
     Dates: start: 20080918

REACTIONS (6)
  - Gallbladder disorder [None]
  - Cholecystitis [None]
  - Biliary dyskinesia [None]
  - Injury [None]
  - Pain [None]
  - Pain [None]
